FAERS Safety Report 21029148 (Version 1)
Quarter: 2022Q3

REPORT INFORMATION
  Report Type: Spontaneous
  Country: FR (occurrence: FR)
  Receive Date: 20220630
  Receipt Date: 20220630
  Transmission Date: 20221026
  Serious: Yes (Other)
  Sender: FDA-Public Use
  Company Number: FR-NOVARTISPH-NVSC2022FR145929

PATIENT
  Age: 0 Year

DRUGS (13)
  1. OMEPRAZOLE [Suspect]
     Active Substance: OMEPRAZOLE
     Indication: Foetal exposure during pregnancy
     Dosage: MATERNAL DOSE: 40 MG Q12H
     Route: 064
     Dates: end: 20210202
  2. AZACTAM [Suspect]
     Active Substance: AZTREONAM
     Indication: Foetal exposure during pregnancy
     Dosage: MATERNAL DOSE AT EXPOSURE: 6 G
     Route: 064
     Dates: start: 20210127, end: 20210202
  3. AZACTAM [Suspect]
     Active Substance: AZTREONAM
     Dosage: MATERNAL DOSE AT EXPOSURE: 1 G
     Route: 064
  4. CREON [Suspect]
     Active Substance: PANCRELIPASE AMYLASE\PANCRELIPASE LIPASE\PANCRELIPASE PROTEASE
     Indication: Foetal exposure during pregnancy
     Dosage: MATERNAL DOSE AT EXPOSURE: 1 DF (11 TO 16 CAPS DAILY)
     Route: 064
     Dates: start: 20210202
  5. CEFTAZIDIME [Suspect]
     Active Substance: CEFTAZIDIME
     Indication: Foetal exposure during pregnancy
     Dosage: MATERNAL DOSE AT EXPOSURE: 5 G Q12H
     Route: 064
     Dates: start: 20200119, end: 20210127
  6. CALCIUM PHOSPHATE, DIBASIC, ANHYDROUS\MAGNESIUM GLYCEROPHOSPHATE\PHOSP [Suspect]
     Active Substance: CALCIUM PHOSPHATE, DIBASIC, ANHYDROUS\MAGNESIUM GLYCEROPHOSPHATE\PHOSPHORIC ACID\SODIUM PHOSPHATE, D
     Indication: Foetal exposure during pregnancy
     Dosage: MATERNAL DOSE: 200 DROP (1/12 MILLILITRE)
     Route: 064
  7. BRICANYL [Suspect]
     Active Substance: TERBUTALINE SULFATE
     Indication: Foetal exposure during pregnancy
     Dosage: MATERNAL DOSE: 2 INHALATIONS IF NEEDED
     Route: 064
  8. INSULIN NOS [Suspect]
     Active Substance: INSULIN NOS
     Indication: Foetal exposure during pregnancy
     Dosage: MATERNAL DOSE: 200 (DROP (1/12 MILLILITRE))
     Route: 064
  9. .ALPHA.-TOCOPHEROL ACETATE, D- [Suspect]
     Active Substance: .ALPHA.-TOCOPHEROL ACETATE, D-
     Indication: Foetal exposure during pregnancy
     Dosage: MATERNAL DOSE AT EXPOSURE: UNK
     Route: 064
  10. PANCREATIN [Suspect]
     Active Substance: PANCRELIPASE
     Indication: Foetal exposure during pregnancy
     Dosage: MATERNAL DOSE: 160000 UL, QD
     Route: 064
  11. SODIUM PHOSPHATE [Suspect]
     Active Substance: SODIUM PHOSPHATE
     Indication: Foetal exposure during pregnancy
     Dosage: MATERNAL DOSE AT EXPOSURE: UNK
     Route: 064
  12. CEFTAZIDIME [Suspect]
     Active Substance: CEFTAZIDIME
     Indication: Foetal exposure during pregnancy
     Dosage: MATERNAL DOSE AT EXPOSURE: UNK
     Route: 064
     Dates: start: 20200922, end: 20201007
  13. KALYDECO [Suspect]
     Active Substance: IVACAFTOR
     Indication: Foetal exposure during pregnancy
     Dosage: MATERNAL DOSE: UNK
     Route: 064
     Dates: start: 2020, end: 20210202

REACTIONS (3)
  - Pulmonary haemorrhage neonatal [Unknown]
  - Premature baby [Unknown]
  - Foetal exposure during pregnancy [Unknown]

NARRATIVE: CASE EVENT DATE: 20210202
